FAERS Safety Report 6372974-3 (Version None)
Quarter: 2009Q3

REPORT INFORMATION
  Report Type: 
  Country: None (occurrence: None)
  Receive Date: 20090924
  Receipt Date: 20081218
  Transmission Date: 20100115
  Serious: No
  Sender: FDA-Public Use
  Company Number: US-ASTRAZENECA-2008UW28321

PATIENT
  Sex: Female

DRUGS (3)
  1. SEROQUEL [Suspect]
     Indication: BIPOLAR DISORDER
     Dosage: 400 MG
     Route: 048
  2. BUPROPHINE [Concomitant]
  3. ADDICTION MEDICATION [Concomitant]

REACTIONS (1)
  - NEUROPATHY PERIPHERAL [None]
